FAERS Safety Report 12336963 (Version 4)
Quarter: 2025Q3

REPORT INFORMATION
  Report Type: Spontaneous
  Country: EU (occurrence: EU)
  Receive Date: 20160505
  Receipt Date: 20250909
  Transmission Date: 20251021
  Serious: Yes (Life-Threatening, Hospitalization, Other)
  Sender: RANBAXY
  Company Number: EU-MLMSERVICE-20160421-0257054-1

PATIENT
  Age: 72 Year
  Sex: Female

DRUGS (1)
  1. FLECAINIDE [Suspect]
     Active Substance: FLECAINIDE
     Indication: Product used for unknown indication
     Route: 048

REACTIONS (12)
  - Toxicity to various agents [Recovered/Resolved]
  - Cardiogenic shock [Recovered/Resolved]
  - Shock [Recovered/Resolved]
  - Post-anoxic myoclonus [Recovered/Resolved]
  - Parkinsonism [Recovering/Resolving]
  - Myoclonus [Recovered/Resolved]
  - Loss of consciousness [Recovered/Resolved]
  - Hypokinesia [Recovered/Resolved]
  - Muscle rigidity [Recovered/Resolved]
  - Reduced facial expression [Recovered/Resolved]
  - Suicide attempt [Unknown]
  - Overdose [Unknown]
